FAERS Safety Report 19031176 (Version 1)
Quarter: 2021Q1

REPORT INFORMATION
  Report Type: Spontaneous
  Country: US (occurrence: US)
  Receive Date: 20210318
  Receipt Date: 20210318
  Transmission Date: 20210420
  Serious: No
  Sender: FDA-Public Use
  Company Number: None

PATIENT
  Age: 59 Year
  Sex: Female
  Weight: 99.79 kg

DRUGS (2)
  1. LOSARTAN 50MG [Suspect]
     Active Substance: LOSARTAN
  2. OLMESARTAN 40MG [Suspect]
     Active Substance: OLMESARTAN

REACTIONS (5)
  - Palpitations [None]
  - Chest discomfort [None]
  - Drug intolerance [None]
  - Dyspnoea [None]
  - Drug ineffective [None]
